FAERS Safety Report 13321905 (Version 1)
Quarter: 2017Q1

REPORT INFORMATION
  Report Type: Spontaneous
  Country: US (occurrence: US)
  Receive Date: 20170310
  Receipt Date: 20170310
  Transmission Date: 20170428
  Serious: Yes (Hospitalization)
  Sender: FDA-Public Use
  Company Number: None

PATIENT
  Sex: Male
  Weight: 63.6 kg

DRUGS (1)
  1. IPILIMUMAB (BMS-734016; MDX-010 TRANSFECTOMA-DERIVED) [Suspect]
     Active Substance: IPILIMUMAB
     Dates: end: 20161229

REACTIONS (7)
  - Abdominal distension [None]
  - Pancreatitis [None]
  - Abdominal discomfort [None]
  - Constipation [None]
  - Gallbladder enlargement [None]
  - Splenic vein thrombosis [None]
  - Colitis [None]

NARRATIVE: CASE EVENT DATE: 20170117
